FAERS Safety Report 6584730-1 (Version None)
Quarter: 2010Q1

REPORT INFORMATION
  Report Type: 
  Country: None (occurrence: None)
  Receive Date: 20100217
  Receipt Date: 20100208
  Transmission Date: 20100710
  Serious: Yes (Hospitalization, Other)
  Sender: FDA-Public Use
  Company Number: PHEH2010US02400

PATIENT
  Sex: Female

DRUGS (14)
  1. EXJADE [Suspect]
     Dosage: 1000 MG, QD
  2. LINEZOLID [Concomitant]
     Dosage: 600 MG, BID
  3. HYDROXYUREA [Concomitant]
     Dosage: 500 MG, QD
  4. FUROSEMIDE [Concomitant]
     Dosage: 20 MG, QD
  5. CARVEDILOL [Concomitant]
     Dosage: 18.75 MG, BID
  6. DIGOXIN [Concomitant]
     Dosage: .125 MG, QD
  7. DIGOXIN [Concomitant]
     Dosage: .250 MG, QD
  8. HYDROCODONE [Concomitant]
     Dosage: 1 UNK, PRN
  9. PRINIVIL [Concomitant]
     Dosage: 5 MG, QD
  10. MAGNESIUM HYDROXIDE TAB [Concomitant]
  11. MAALOX                                  /NET/ [Concomitant]
  12. ZOFRAN [Concomitant]
     Dosage: 4 MG, UNK
  13. AMBIEN [Concomitant]
     Dosage: 5 MG, PRN
  14. VALTREX [Concomitant]
     Dosage: 500 MG, BID

REACTIONS (13)
  - ABSCESS [None]
  - ABSCESS DRAINAGE [None]
  - ANAEMIA [None]
  - BLOOD PRESSURE DECREASED [None]
  - CACHEXIA [None]
  - CARDIAC FAILURE CONGESTIVE [None]
  - CARDIAC MURMUR [None]
  - LYMPHADENOPATHY [None]
  - MALAISE [None]
  - OEDEMA PERIPHERAL [None]
  - RALES [None]
  - STAPHYLOCOCCAL INFECTION [None]
  - THROMBOCYTOPENIA [None]
